FAERS Safety Report 7530999-6 (Version None)
Quarter: 2011Q2

REPORT INFORMATION
  Report Type: 
  Country: None (occurrence: None)
  Receive Date: 20110608
  Receipt Date: 20091113
  Transmission Date: 20111010
  Serious: Yes (Other)
  Sender: FDA-Public Use
  Company Number: US-BAYER-200939222NA

PATIENT
  Age: 61 Year
  Sex: Male
  Weight: 96 kg

DRUGS (10)
  1. AVANDIA [Concomitant]
     Dosage: UNK
     Route: 048
     Dates: start: 20000101
  2. LOTENSIN [Concomitant]
     Dosage: UNK
     Route: 048
     Dates: start: 19900101
  3. PRILOSEC [Concomitant]
     Dosage: UNK
     Route: 048
     Dates: start: 20000101
  4. NORVASC [Concomitant]
     Dosage: UNK
     Route: 048
     Dates: start: 20000101
  5. METFORMIN HCL [Concomitant]
     Dosage: UNK
     Route: 048
     Dates: start: 20000101, end: 20030101
  6. TRASYLOL [Suspect]
     Indication: CORONARY ARTERY BYPASS
     Route: 042
     Dates: start: 20000816
  7. TYLENOL REGULAR [Concomitant]
     Dosage: UNK
     Dates: start: 19900101
  8. ACETYLSALICYLIC ACID SRT [Concomitant]
     Dosage: 81 MG, UNK
     Route: 048
     Dates: start: 20000101
  9. LIPITOR [Concomitant]
     Dosage: UNK
     Route: 048
     Dates: start: 19900101
  10. IMDUR [Concomitant]
     Dosage: UNK
     Route: 048
     Dates: start: 20000101

REACTIONS (10)
  - INJURY [None]
  - STRESS [None]
  - PAIN [None]
  - RENAL FAILURE [None]
  - ANXIETY [None]
  - RENAL INJURY [None]
  - FEAR [None]
  - ANHEDONIA [None]
  - EMOTIONAL DISTRESS [None]
  - UNEVALUABLE EVENT [None]
